FAERS Safety Report 9767822 (Version 1)
Quarter: 2013Q4

REPORT INFORMATION
  Report Type: Spontaneous
  Country: FR (occurrence: FR)
  Receive Date: 20131217
  Receipt Date: 20131217
  Transmission Date: 20140711
  Serious: Yes (Hospitalization)
  Sender: FDA-Public Use
  Company Number: FR-ASTRAZENECA-2013SE90880

PATIENT
  Age: 21206 Day
  Sex: Male

DRUGS (4)
  1. INEXIUM [Suspect]
     Route: 048
     Dates: start: 201207, end: 20130610
  2. DEPAKINE CHRONO [Suspect]
     Route: 048
     Dates: start: 201207, end: 20130608
  3. DEPAKINE CHRONO [Suspect]
     Route: 048
     Dates: start: 20130608
  4. AVLOCARDYL [Concomitant]
     Dates: start: 201207

REACTIONS (2)
  - Alcohol poisoning [Unknown]
  - Pancytopenia [Recovered/Resolved]
